FAERS Safety Report 6619054-7 (Version None)
Quarter: 2010Q1

REPORT INFORMATION
  Report Type: 
  Country: None (occurrence: None)
  Receive Date: 20100308
  Receipt Date: 20100222
  Transmission Date: 20100710
  Serious: Yes (Hospitalization, Other)
  Sender: FDA-Public Use
  Company Number: FR-PFIZER INC-2010025399

PATIENT
  Age: 45 Year
  Sex: Male

DRUGS (10)
  1. NELFINAVIR MESILATE [Suspect]
     Indication: HIV INFECTION
     Dosage: UNK
     Route: 065
     Dates: start: 19991101
  2. ZIDOVUDINE [Suspect]
     Indication: HIV INFECTION
     Dosage: UNK
     Route: 065
     Dates: start: 20010701
  3. STAVUDINE [Suspect]
     Indication: HIV INFECTION
     Dosage: UNK
     Route: 065
     Dates: start: 19991101
  4. SAQUINAVIR [Suspect]
     Indication: HIV INFECTION
     Dosage: UNK
     Route: 065
     Dates: start: 20031001
  5. DIDANOSINE [Suspect]
     Indication: HIV INFECTION
     Dosage: UNK
     Route: 065
     Dates: start: 19991101
  6. LAMIVUDINE [Suspect]
     Indication: HIV INFECTION
     Dosage: UNK
     Route: 065
     Dates: start: 20031001
  7. INDINAVIR [Suspect]
     Indication: HIV INFECTION
     Dosage: UNK
     Route: 065
     Dates: start: 20020701
  8. RITONAVIR [Suspect]
     Indication: HIV INFECTION
     Dosage: UNK
     Route: 065
     Dates: start: 20031001
  9. ABACAVIR [Suspect]
     Indication: HIV INFECTION
     Dosage: UNK
     Route: 065
     Dates: start: 20031001
  10. LOPINAVIR [Suspect]
     Indication: HIV INFECTION
     Dosage: UNK
     Route: 065
     Dates: start: 20040701

REACTIONS (1)
  - OSTEONECROSIS [None]
